FAERS Safety Report 7689843-9 (Version None)
Quarter: 2011Q3

REPORT INFORMATION
  Report Type: 
  Country: None (occurrence: None)
  Receive Date: 20110818
  Receipt Date: 20110812
  Transmission Date: 20111222
  Serious: Yes (Hospitalization)
  Sender: FDA-Public Use
  Company Number: US-BIOGENIDEC-2009BI042169

PATIENT
  Age: 30 Year
  Sex: Female

DRUGS (7)
  1. AVONEX [Suspect]
     Indication: MULTIPLE SCLEROSIS
     Route: 030
     Dates: start: 20090228, end: 20100901
  2. REBIF [Concomitant]
     Indication: MULTIPLE SCLEROSIS
  3. AVONEX [Suspect]
     Route: 030
     Dates: start: 20110429
  4. COPAXONE [Concomitant]
  5. AVONEX [Suspect]
     Route: 030
     Dates: start: 20020906, end: 20040301
  6. AVONEX [Suspect]
     Route: 030
     Dates: start: 20110701
  7. AVONEX [Suspect]
     Route: 030
     Dates: end: 20080101

REACTIONS (10)
  - FLUID RETENTION [None]
  - ABDOMINAL ABSCESS [None]
  - TRIGEMINAL NEURALGIA [None]
  - HERNIA [None]
  - DRUG HYPERSENSITIVITY [None]
  - INTESTINAL PERFORATION [None]
  - CONVULSION [None]
  - PELVIC SEPSIS [None]
  - OVARIAN CYST [None]
  - OVERWEIGHT [None]
